FAERS Safety Report 4373479-1 (Version None)
Quarter: 2004Q1

REPORT INFORMATION
  Report Type: 
  Country: None (occurrence: None)
  Receive Date: 20040305
  Receipt Date: 20031218
  Transmission Date: 20041129
  Serious: Yes (Other)
  Sender: FDA-Public Use
  Company Number: 2003UW16915

PATIENT
  Age: 76 Year
  Sex: Female
  Weight: 68.0396 kg

DRUGS (3)
  1. CRESTOR [Suspect]
     Indication: HYPERCHOLESTEROLAEMIA
     Dosage: 10 MG QD PO
     Route: 048
     Dates: start: 20031201
  2. LISINOPRIL [Concomitant]
  3. LEVOTHROID [Concomitant]

REACTIONS (3)
  - FATIGUE [None]
  - HEART RATE IRREGULAR [None]
  - MUSCULAR WEAKNESS [None]
